FAERS Safety Report 5330046-0 (Version None)
Quarter: 2007Q2

REPORT INFORMATION
  Report Type: 
  Country: None (occurrence: None)
  Receive Date: 20070521
  Receipt Date: 20070507
  Transmission Date: 20071010
  Serious: Yes (Hospitalization)
  Sender: FDA-Public Use
  Company Number: ES-ELI_LILLY_AND_COMPANY-ES200705004332

PATIENT
  Age: 75 Year
  Sex: Male

DRUGS (4)
  1. ZYPREXA [Suspect]
     Indication: DEPRESSION
     Dosage: 5 MG, DAILY (1/D)
     Route: 048
     Dates: start: 20040811, end: 20050819
  2. ANAFRANIL [Concomitant]
     Dosage: 75 MG, UNK
  3. VENTOLIN                                /SCH/ [Concomitant]
  4. SERETIDE [Concomitant]
     Indication: ASTHMA

REACTIONS (1)
  - PULMONARY EMBOLISM [None]
